FAERS Safety Report 7517386-1 (Version None)
Quarter: 2011Q2

REPORT INFORMATION
  Report Type: 
  Country: None (occurrence: None)
  Receive Date: 20110601
  Receipt Date: 20100419
  Transmission Date: 20111010
  Serious: No
  Sender: FDA-Public Use
  Company Number: US-BAYER-201020700NA

PATIENT
  Age: 71 Year
  Sex: Female

DRUGS (5)
  1. COUMADIN [Concomitant]
  2. BUMEX [Concomitant]
  3. AVELOX [Suspect]
     Indication: BRONCHITIS
     Dates: start: 20100416, end: 20100417
  4. TYLENOL (CAPLET) [Concomitant]
  5. CIPRO [Suspect]
     Indication: PRODUCT USED FOR UNKNOWN INDICATION

REACTIONS (3)
  - HYPERSENSITIVITY [None]
  - CONTUSION [None]
  - OEDEMA PERIPHERAL [None]
